FAERS Safety Report 5633212-X (Version None)
Quarter: 2008Q1

REPORT INFORMATION
  Report Type: 
  Country: None (occurrence: None)
  Receive Date: 20080221
  Receipt Date: 20080218
  Transmission Date: 20080703
  Serious: Yes (Hospitalization)
  Sender: FDA-Public Use
  Company Number: JP-BRISTOL-MYERS SQUIBB COMPANY-14078844

PATIENT
  Age: 63 Year
  Sex: Female

DRUGS (2)
  1. TAXOL [Suspect]
     Indication: CERVIX CARCINOMA
     Dosage: 18-MAY-2007 TO 02-NOV-2007, RECEIVED 6 COURSES OF PACLITAXEL 310 MG.
     Route: 041
     Dates: start: 20070518, end: 20071102
  2. PARAPLATIN [Suspect]
     Indication: CERVIX CARCINOMA
     Dosage: 18-MAY-2007 TO 02-NOV-2007, RECEIVED 6 COURSES OF CARBOPLATIN 760 MG.
     Route: 041
     Dates: start: 20070518, end: 20071102

REACTIONS (1)
  - INTERSTITIAL LUNG DISEASE [None]
